FAERS Safety Report 5490850-5 (Version None)
Quarter: 2007Q4

REPORT INFORMATION
  Report Type: 
  Country: None (occurrence: None)
  Receive Date: 20071019
  Receipt Date: 20071008
  Transmission Date: 20080405
  Serious: Yes (Hospitalization)
  Sender: FDA-Public Use
  Company Number: FR-JNJFOC-20071003280

PATIENT
  Sex: Male

DRUGS (5)
  1. CONTRAMAL [Suspect]
     Indication: DRUG USE FOR UNKNOWN INDICATION
     Route: 048
  2. MOBIC [Suspect]
     Indication: DRUG USE FOR UNKNOWN INDICATION
     Route: 048
  3. EFFEXOR [Suspect]
     Indication: DRUG USE FOR UNKNOWN INDICATION
     Route: 065
  4. AMLOR [Suspect]
     Indication: DRUG USE FOR UNKNOWN INDICATION
     Route: 048
  5. LEVOTHYROXINE SODIUM [Concomitant]

REACTIONS (2)
  - HEPATIC FAILURE [None]
  - HEPATITIS FULMINANT [None]
